FAERS Safety Report 23535901 (Version 2)
Quarter: 2024Q2

REPORT INFORMATION
  Report Type: Report from Study
  Country: CA (occurrence: CA)
  Receive Date: 20240219
  Receipt Date: 20240605
  Transmission Date: 20240716
  Serious: Yes (Other)
  Sender: FDA-Public Use
  Company Number: CA-BIOCON-BBL2024000052

PATIENT

DRUGS (1)
  1. HULIO [Suspect]
     Active Substance: ADALIMUMAB-FKJP
     Indication: Hidradenitis
     Dosage: 40 MILLIGRAM, QW (WEEKLY) AFTER LOADING DOSES
     Route: 058
     Dates: start: 20231228

REACTIONS (3)
  - Back pain [Unknown]
  - Somnolence [Unknown]
  - Fatigue [Unknown]
